FAERS Safety Report 11383505 (Version 1)
Quarter: 2015Q3

REPORT INFORMATION
  Report Type: Spontaneous
  Country: US (occurrence: US)
  Receive Date: 20150814
  Receipt Date: 20150814
  Transmission Date: 20151125
  Serious: No
  Sender: FDA-Public Use
  Company Number: US-ASTRAZENECA-2015SE75604

PATIENT
  Sex: Male
  Weight: 72.1 kg

DRUGS (4)
  1. ALBUTEROL. [Concomitant]
     Active Substance: ALBUTEROL
     Indication: CHRONIC OBSTRUCTIVE PULMONARY DISEASE
     Dosage: AS REQUIRED
     Route: 055
  2. OXYGEN. [Concomitant]
     Active Substance: OXYGEN
     Dosage: 24 HOURS 7 DAYS A WEEK
  3. BRIO [Concomitant]
  4. SYMBICORT [Suspect]
     Active Substance: BUDESONIDE\FORMOTEROL FUMARATE DIHYDRATE
     Indication: CHRONIC OBSTRUCTIVE PULMONARY DISEASE
     Dosage: 160/4.5 MCG 1 PUFF OR 2 PUFFS TWO TIMES A DAY
     Route: 055

REACTIONS (3)
  - Bradyphrenia [Unknown]
  - Therapeutic response unexpected [Unknown]
  - Off label use [Not Recovered/Not Resolved]
